FAERS Safety Report 9051106 (Version 1)
Quarter: 2013Q1

REPORT INFORMATION
  Report Type: Spontaneous
  Country: JP (occurrence: JP)
  Receive Date: 20130206
  Receipt Date: 20130206
  Transmission Date: 20140127
  Serious: Yes (Hospitalization)
  Sender: FDA-Public Use
  Company Number: JP-SANOFI-AVENTIS-2013SA010128

PATIENT
  Sex: Male

DRUGS (1)
  1. MYSLEE [Suspect]
     Indication: INSOMNIA
     Route: 048

REACTIONS (1)
  - Liver disorder [Not Recovered/Not Resolved]
